FAERS Safety Report 8759068 (Version 2)
Quarter: 2014Q1

REPORT INFORMATION
  Report Type: Spontaneous
  Country: SG (occurrence: SG)
  Receive Date: 20120829
  Receipt Date: 20140107
  Transmission Date: 20141002
  Serious: Yes (Other)
  Sender: FDA-Public Use
  Company Number: SG-PAR PHARMACEUTICAL, INC-2012SCPR004578

PATIENT
  Sex: 0

DRUGS (5)
  1. CABERGOLINE [Suspect]
     Indication: PROLACTINOMA
     Dosage: 0.5 MG, TWICE A WEEK, INCREASED AFTER 4 WEEKS
     Route: 065
  2. CABERGOLINE [Suspect]
     Dosage: 0.25 MG, TWICE A WEEK, INITIAL DOSE
     Route: 065
  3. CABERGOLINE [Suspect]
     Dosage: 0.25 MG, TWICE A WEEK
     Route: 065
  4. CABERGOLINE [Suspect]
     Dosage: 0.5 MG, TWICE A WEEK
     Route: 065
  5. CABERGOLINE [Suspect]
     Dosage: 0.25 MG, TWICE A WEEK
     Route: 065

REACTIONS (1)
  - Pituitary haemorrhage [Recovered/Resolved]
